FAERS Safety Report 4587018-3 (Version None)
Quarter: 2005Q1

REPORT INFORMATION
  Report Type: 
  Country: None (occurrence: None)
  Receive Date: 20050218
  Receipt Date: 20050209
  Transmission Date: 20050727
  Serious: Yes (Death, Life-Threatening)
  Sender: FDA-Public Use
  Company Number: ES-BRISTOL-MYERS SQUIBB COMPANY-12856993

PATIENT
  Age: 64 Year
  Sex: Male

DRUGS (5)
  1. CISPLATIN [Suspect]
     Indication: GLIOBLASTOMA MULTIFORME
     Route: 042
     Dates: start: 20001124, end: 20001124
  2. TEMODAL [Suspect]
     Indication: GLIOBLASTOMA MULTIFORME
     Route: 048
     Dates: start: 20001124, end: 20001128
  3. VALPROATE SODIUM [Concomitant]
  4. DEXAMETHASONE [Concomitant]
  5. RADIATION THERAPY [Concomitant]

REACTIONS (5)
  - FEBRILE NEUTROPENIA [None]
  - LEUKOPENIA [None]
  - NEOPLASM MALIGNANT [None]
  - PNEUMONIA [None]
  - THROMBOCYTOPENIA [None]
